FAERS Safety Report 7971875-4 (Version None)
Quarter: 2011Q4

REPORT INFORMATION
  Report Type: 
  Country: None (occurrence: None)
  Receive Date: 20111212
  Receipt Date: 20111129
  Transmission Date: 20120403
  Serious: Yes (Death, Other)
  Sender: FDA-Public Use
  Company Number: US-BAYER-2011-039296

PATIENT
  Sex: Male
  Weight: 99 kg

DRUGS (18)
  1. MAGNEVIST [Suspect]
     Indication: NUCLEAR MAGNETIC RESONANCE IMAGING ABDOMINAL
     Dosage: UNK
     Dates: start: 20020204, end: 20020204
  2. OMNISCAN [Suspect]
     Indication: NUCLEAR MAGNETIC RESONANCE IMAGING
  3. MAGNEVIST [Suspect]
     Indication: STENT PLACEMENT
     Dosage: UNK
     Dates: start: 20030514, end: 20030514
  4. MAGNEVIST [Suspect]
     Dosage: UNK
     Dates: start: 20041019, end: 20041019
  5. OPTIMARK [Suspect]
     Indication: ANGIOGRAM
  6. MULTIHANCE [Suspect]
     Indication: NUCLEAR MAGNETIC RESONANCE IMAGING
  7. MAGNEVIST [Suspect]
     Indication: ANGIOPLASTY
     Dosage: UNK
     Dates: start: 20021002, end: 20021002
  8. MAGNEVIST [Suspect]
     Dosage: UNK
     Dates: start: 20041202, end: 20041202
  9. PROHANCE [Suspect]
     Indication: NUCLEAR MAGNETIC RESONANCE IMAGING
  10. MULTIHANCE [Suspect]
     Indication: ANGIOGRAM
  11. MAGNEVIST [Suspect]
     Indication: NUCLEAR MAGNETIC RESONANCE IMAGING
     Dosage: 10 ML, ONCE
     Dates: start: 20060825, end: 20060825
  12. PROHANCE [Suspect]
     Indication: ANGIOGRAM
  13. OMNISCAN [Suspect]
     Indication: ANGIOGRAM
  14. OPTIMARK [Suspect]
     Indication: NUCLEAR MAGNETIC RESONANCE IMAGING
  15. MAGNEVIST [Suspect]
     Indication: BACK PAIN
     Dosage: UNK
     Dates: start: 20010320, end: 20010320
  16. MAGNEVIST [Suspect]
     Indication: ANGIOGRAM
     Dosage: UNK
     Dates: start: 20010517, end: 20010517
  17. MAGNEVIST [Suspect]
     Indication: NUCLEAR MAGNETIC RESONANCE IMAGING BRAIN
     Dosage: UNK
     Dates: start: 20020327, end: 20020327
  18. MAGNEVIST [Suspect]
     Dosage: UNK
     Dates: start: 20020909, end: 20020909

REACTIONS (18)
  - EXTREMITY CONTRACTURE [None]
  - SKIN TIGHTNESS [None]
  - NEPHROGENIC SYSTEMIC FIBROSIS [None]
  - SKIN INDURATION [None]
  - SKIN FIBROSIS [None]
  - JOINT CONTRACTURE [None]
  - JOINT RANGE OF MOTION DECREASED [None]
  - PAIN [None]
  - ASTHENIA [None]
  - SKIN DISCOLOURATION [None]
  - CARDIOVASCULAR DISORDER [None]
  - FIBROSIS [None]
  - GAIT DISTURBANCE [None]
  - PRURITUS [None]
  - PEAU D'ORANGE [None]
  - SKIN LESION [None]
  - BURNING SENSATION [None]
  - MUSCULOSKELETAL STIFFNESS [None]
